FAERS Safety Report 21126500 (Version 1)
Quarter: 2022Q3

REPORT INFORMATION
  Report Type: Spontaneous
  Country: NO (occurrence: NO)
  Receive Date: 20220725
  Receipt Date: 20220725
  Transmission Date: 20221027
  Serious: Yes (Hospitalization)
  Sender: FDA-Public Use
  Company Number: NO-ELI_LILLY_AND_COMPANY-NO202207008354

PATIENT
  Age: 42 Year
  Sex: Male
  Weight: 108 kg

DRUGS (4)
  1. CYMBALTA [Suspect]
     Active Substance: DULOXETINE HYDROCHLORIDE
     Indication: Back pain
     Dosage: 60 MG, UNKNOWN
     Route: 065
     Dates: start: 201906
  2. CYMBALTA [Suspect]
     Active Substance: DULOXETINE HYDROCHLORIDE
     Indication: Neuralgia
  3. MORPHINE [Concomitant]
     Active Substance: MORPHINE
     Indication: Back pain
     Dosage: UNK
     Route: 062
     Dates: start: 2019, end: 2019
  4. MORPHINE [Concomitant]
     Active Substance: MORPHINE
     Indication: Neuralgia

REACTIONS (7)
  - Psychotic disorder [Recovered/Resolved]
  - Euphoric mood [Recovered/Resolved]
  - Nervousness [Recovered/Resolved]
  - Thirst [Recovered/Resolved]
  - Malaise [Recovered/Resolved]
  - Illness [Unknown]
  - Malaise [Unknown]

NARRATIVE: CASE EVENT DATE: 20191101
